FAERS Safety Report 8900873 (Version 3)
Quarter: 2015Q1

REPORT INFORMATION
  Report Type: Spontaneous
  Country: US (occurrence: US)
  Receive Date: 20121109
  Receipt Date: 20150130
  Transmission Date: 20150721
  Serious: Yes (Death)
  Sender: FDA-Public Use
  Company Number: US-SANOFI-AVENTIS-2012SA081731

PATIENT
  Age: 64 Year
  Sex: Male

DRUGS (1)
  1. PLAVIX [Suspect]
     Active Substance: CLOPIDOGREL BISULFATE
     Indication: CORONARY ARTERIAL STENT INSERTION
     Route: 065
     Dates: start: 20020401, end: 20101111

REACTIONS (5)
  - Multi-organ failure [Fatal]
  - Renal failure [Fatal]
  - Coma [Fatal]
  - Cerebral haemorrhage [Fatal]
  - Septic shock [Fatal]

NARRATIVE: CASE EVENT DATE: 201011
